FAERS Safety Report 17098839 (Version 4)
Quarter: 2020Q1

REPORT INFORMATION
  Report Type: Spontaneous
  Country: CA (occurrence: CA)
  Receive Date: 20191202
  Receipt Date: 20200225
  Transmission Date: 20200409
  Serious: Yes (Other)
  Sender: FDA-Public Use
  Company Number: CA-PFIZER INC-2019513953

PATIENT
  Age: 28 Year
  Sex: Male

DRUGS (3)
  1. XELJANZ [Suspect]
     Active Substance: TOFACITINIB CITRATE
     Dosage: 10 MG, 2X/DAY (BID )
     Route: 048
     Dates: end: 20200218
  2. XELJANZ [Suspect]
     Active Substance: TOFACITINIB CITRATE
     Indication: COLITIS ULCERATIVE
     Dosage: 10 MG, 2X/DAY
     Route: 048
     Dates: start: 20191116, end: 201911
  3. MEZAVANT [Concomitant]
     Active Substance: MESALAMINE
     Dosage: UNK (4 COS), 1X/DAY
     Route: 048

REACTIONS (9)
  - Diarrhoea [Unknown]
  - Rectal haemorrhage [Unknown]
  - Rash [Unknown]
  - Condition aggravated [Unknown]
  - Erythema [Unknown]
  - Drug hypersensitivity [Unknown]
  - Haematochezia [Unknown]
  - Drug ineffective [Unknown]
  - Pruritus [Unknown]

NARRATIVE: CASE EVENT DATE: 201911
